FAERS Safety Report 9162622 (Version 3)
Quarter: 2013Q2

REPORT INFORMATION
  Report Type: Spontaneous
  Country: JP (occurrence: None)
  Receive Date: 20130222
  Receipt Date: 20130417
  Transmission Date: 20140414
  Serious: Yes (Other)
  Sender: FDA-Public Use
  Company Number: SYM-2013-00729

PATIENT
  Age: 35 Year
  Sex: Male

DRUGS (3)
  1. FLUOROURACIL [Suspect]
     Indication: LUNG NEOPLASM MALIGNANT
     Dosage: 600 MG/M2
     Dates: start: 20090116
  2. CISPLATIN [Suspect]
     Indication: LUNG NEOPLASM MALIGNANT
     Dates: start: 20090116
  3. DOCETAXEL [Suspect]
     Indication: LUNG NEOPLASM MALIGNANT
     Dates: start: 20090116

REACTIONS (7)
  - Febrile neutropenia [None]
  - Decreased appetite [None]
  - Nausea [None]
  - Alopecia [None]
  - Diarrhoea [None]
  - White blood cell count decreased [None]
  - Nausea [None]
